FAERS Safety Report 10424257 (Version 7)
Quarter: 2017Q4

REPORT INFORMATION
  Report Type: Spontaneous
  Country: US (occurrence: US)
  Receive Date: 20140902
  Receipt Date: 20171121
  Transmission Date: 20180320
  Serious: No
  Sender: FDA-Public Use
  Company Number: US-PFIZER INC-2014240924

PATIENT
  Age: 64 Year
  Sex: Female
  Weight: 89 kg

DRUGS (47)
  1. LYRICA [Suspect]
     Active Substance: PREGABALIN
     Indication: FIBROMYALGIA
     Dosage: 50 MG, THREE TIMES A DAY
     Route: 048
     Dates: start: 20150120
  2. ZYLOPRIM [Concomitant]
     Active Substance: ALLOPURINOL
     Dosage: 100 MG, 2X/DAY
     Route: 048
  3. MECLIZINE [Concomitant]
     Active Substance: MECLIZINE HYDROCHLORIDE
     Dosage: UNK
  4. ATENOLOL. [Concomitant]
     Active Substance: ATENOLOL
     Indication: HYPERTENSION
     Dosage: UNK
  5. TAXOTERE [Concomitant]
     Active Substance: DOCETAXEL
     Dosage: UNK
     Route: 042
  6. MYCOSTATIN [Concomitant]
     Active Substance: NYSTATIN
     Dosage: UNK, 4X/DAY
     Route: 048
  7. FLONASE [Concomitant]
     Active Substance: FLUTICASONE PROPIONATE
     Dosage: 50MCG/ACTUATION NASAL SPRAY, 1 SPRAY BY EACH NASAL ROUTE ONE (1) TIME A DAY
     Route: 045
  8. VITAMIN A [Concomitant]
     Active Substance: VITAMIN A
     Dosage: 1 DF, 1X/DAY
     Route: 048
  9. BUSPIRONE HCL [Concomitant]
     Active Substance: BUSPIRONE HYDROCHLORIDE
     Dosage: UNK
  10. XYLOCAINE [Concomitant]
     Active Substance: LIDOCAINE HYDROCHLORIDE
     Dosage: UNK, 1X/DAY (APPLY 2 APPLICATION)
     Route: 061
  11. LYRICA [Suspect]
     Active Substance: PREGABALIN
     Dosage: 50 MG, THREE TIMES A DAY
     Route: 048
     Dates: start: 20161201
  12. THERAGRAN [Concomitant]
     Active Substance: VITAMINS
     Dosage: 1 DF, 1X/DAY
     Route: 048
  13. OXISTAT [Concomitant]
     Active Substance: OXICONAZOLE NITRATE
     Dosage: APPLY 2 (TWO) TIMES A DAY
     Route: 061
  14. CHLORTHALIDONE. [Concomitant]
     Active Substance: CHLORTHALIDONE
     Dosage: UNK
  15. LYRICA [Suspect]
     Active Substance: PREGABALIN
     Indication: MYALGIA
     Dosage: 50 MG, THREE TIMES A DAY
     Route: 048
     Dates: start: 20160108
  16. LYRICA [Suspect]
     Active Substance: PREGABALIN
     Indication: MYOSITIS
     Dosage: 50 MG, THREE TIMES A DAY
     Route: 048
     Dates: start: 20160825
  17. ASPIRIN. [Concomitant]
     Active Substance: ASPIRIN
     Dosage: 325 MG, 1X/DAY
     Route: 048
  18. HYGROTON [Concomitant]
     Active Substance: CHLORTHALIDONE
     Dosage: 25 MG, DAILY (WITH BREAKFAST)
     Route: 048
  19. STROMECTOL [Concomitant]
     Active Substance: IVERMECTIN
     Dosage: TAKE 3 MG BY MOUTH ONCE, TAKE 5 MG BY MOUTH TODAY, THEN REPEAT IN ONE WEEK
     Route: 048
  20. NORCO [Concomitant]
     Active Substance: ACETAMINOPHEN\HYDROCODONE BITARTRATE
     Indication: PAIN
     Dosage: UNK, AS NEEDED (HYDROCODONE BITARTRATE 5MG, PARACETAMOL 325MG, EVERY 6 (SIX) HOURS)
  21. ELIMITE [Concomitant]
     Active Substance: PERMETHRIN
     Dosage: UNK (APPLY 1 APPLICATION TOPICALLY ONCE)
     Route: 061
  22. PHOSLO [Concomitant]
     Active Substance: CALCIUM ACETATE
     Dosage: 1334 MG, 1X/DAY
     Route: 048
  23. VITAMIN D3 [Concomitant]
     Active Substance: CHOLECALCIFEROL
     Dosage: 1000 IU, 1X/DAY
     Route: 048
  24. ZANAFLEX [Concomitant]
     Active Substance: TIZANIDINE HYDROCHLORIDE
     Dosage: 4 MG, 2X/DAY
     Route: 048
  25. VITAMIN E, DL, ACETATE [Concomitant]
     Dosage: 1000 IU, 1X/DAY
     Route: 048
  26. ALLOPURINOL. [Concomitant]
     Active Substance: ALLOPURINOL
     Dosage: UNK
  27. TIZANIDINE. [Concomitant]
     Active Substance: TIZANIDINE
     Dosage: UNK
  28. CALCIUM LACTATE [Concomitant]
     Active Substance: CALCIUM LACTATE
     Dosage: UNK
     Route: 048
  29. POTASSIUM [Concomitant]
     Active Substance: POTASSIUM
     Dosage: UNK
     Route: 048
  30. RESTORIL [Concomitant]
     Active Substance: TEMAZEPAM
     Dosage: 30 MG, AS NEEDED (NIGHTLY)
     Route: 048
  31. LYRICA [Suspect]
     Active Substance: PREGABALIN
     Dosage: UNK (3-4 TIMES A DAY )
  32. BUSPAR [Concomitant]
     Active Substance: BUSPIRONE HYDROCHLORIDE
     Dosage: 15 MG, 3X/DAY
  33. LOTRISONE [Concomitant]
     Active Substance: BETAMETHASONE DIPROPIONATE\CLOTRIMAZOLE
     Dosage: APPLY TOPICALLY 2 (TWO) TIMES A DAY
     Route: 061
  34. NEXIUM [Concomitant]
     Active Substance: ESOMEPRAZOLE MAGNESIUM
     Dosage: 40 MG, 1X/DAY
     Route: 048
  35. LIDEX [Concomitant]
     Active Substance: FLUOCINONIDE
     Dosage: TOPICAL SOLUTION, APPLY 2 (TWO) TIMES A DAY
     Route: 061
  36. NAPROSYN [Concomitant]
     Active Substance: NAPROXEN
     Dosage: 500 MG, 2X/DAY (WITH MEALS)
     Route: 048
  37. NAPROXEN. [Concomitant]
     Active Substance: NAPROXEN
     Dosage: UNK
  38. PRAVASTATIN. [Concomitant]
     Active Substance: PRAVASTATIN
     Dosage: UNK
  39. CARBOPLATIN. [Concomitant]
     Active Substance: CARBOPLATIN
     Dosage: UNK
     Route: 042
  40. DIFLUCAN [Concomitant]
     Active Substance: FLUCONAZOLE
     Dosage: 200 MG, UNK
  41. ULTRAM [Concomitant]
     Active Substance: TRAMADOL HYDROCHLORIDE
     Dosage: 50 MG, AS NEEDED (EVERY 8 (EIGHT) HOURS)
     Route: 048
  42. LYRICA [Suspect]
     Active Substance: PREGABALIN
     Dosage: 50 MG, THREE TIMES DAILY
     Route: 048
     Dates: start: 20171114
  43. TENORMIN [Concomitant]
     Active Substance: ATENOLOL
     Dosage: 50 MG, 1X/DAY
     Route: 048
  44. COENZYME Q10 [Concomitant]
     Active Substance: UBIDECARENONE
     Dosage: 10 MG, 1X/DAY
     Route: 048
  45. ANTIVERT [Concomitant]
     Active Substance: MECLIZINE HYDROCHLORIDE
     Dosage: 25 MG, AS NEEDED (3 TIMES A DAY)
     Route: 048
  46. PRAVACHOL [Concomitant]
     Active Substance: PRAVASTATIN SODIUM
     Dosage: 20 MG, 1X/DAY
     Route: 048
  47. PHENERGAN [Concomitant]
     Active Substance: PROMETHAZINE HYDROCHLORIDE
     Dosage: 25 MG, AS NEEDED (EVERY 6 (SIX) HOURS )
     Route: 048

REACTIONS (7)
  - Intentional product use issue [Unknown]
  - Myalgia [Unknown]
  - Product use issue [Unknown]
  - Gait disturbance [Unknown]
  - Headache [Unknown]
  - Arthralgia [Unknown]
  - Neck pain [Unknown]

NARRATIVE: CASE EVENT DATE: 201612
